FAERS Safety Report 4632760-9 (Version None)
Quarter: 2005Q2

REPORT INFORMATION
  Report Type: 
  Country: None (occurrence: None)
  Receive Date: 20050408
  Receipt Date: 20050408
  Transmission Date: 20051028
  Serious: Yes (Hospitalization)
  Sender: FDA-Public Use
  Company Number: None

PATIENT
  Age: 62 Year
  Sex: Male
  Weight: 92 kg

DRUGS (11)
  1. CISPLATIN [Suspect]
     Indication: ANAL CANCER
     Dosage: 150 MG INTRAVENOUS
     Route: 042
     Dates: start: 20000801, end: 20010731
  2. FLUOROURACIL [Suspect]
     Dosage: 100 MG INTRAVENOUS
     Route: 042
     Dates: start: 20000801, end: 20010731
  3. PROPOXYPHENE HCL [Concomitant]
  4. DIAZEPAM [Concomitant]
  5. MORPHINE [Concomitant]
  6. VICODIN [Concomitant]
  7. ZOLPIDEM TARTRATE [Concomitant]
  8. KETOROLAC [Concomitant]
  9. ZOSYN [Concomitant]
  10. FAMOTIDINE [Concomitant]
  11. HEPARIN [Concomitant]

REACTIONS (4)
  - IMPLANT SITE PAIN [None]
  - IMPLANT SITE REACTION [None]
  - NAUSEA [None]
  - NECROSIS [None]
